FAERS Safety Report 8689245 (Version 2)
Quarter: 2013Q4

REPORT INFORMATION
  Report Type: Spontaneous
  Country: US (occurrence: US)
  Receive Date: 20120727
  Receipt Date: 20131003
  Transmission Date: 20140711
  Serious: No
  Sender: FDA-Public Use
  Company Number: US-ASTRAZENECA-2011SE75312

PATIENT
  Age: 54 Year
  Sex: Male
  Weight: 93.4 kg

DRUGS (1)
  1. SEROQUEL [Suspect]
     Indication: BIPOLAR DISORDER
     Route: 048

REACTIONS (8)
  - Feeling abnormal [Unknown]
  - Weight decreased [Unknown]
  - Bipolar disorder [Unknown]
  - Hypertension [Unknown]
  - Blood cholesterol increased [Unknown]
  - Off label use [Unknown]
  - Drug dispensing error [Unknown]
  - Intentional drug misuse [Unknown]
